FAERS Safety Report 17693576 (Version 2)
Quarter: 2020Q2

REPORT INFORMATION
  Report Type: Spontaneous
  Country: CN (occurrence: CN)
  Receive Date: 20200422
  Receipt Date: 20200424
  Transmission Date: 20200714
  Serious: Yes (Other)
  Sender: FDA-Public Use
  Company Number: CN-ASTRAZENECA-2020SE53108

PATIENT
  Age: 60 Year
  Sex: Male

DRUGS (1)
  1. IMFINZI [Suspect]
     Active Substance: DURVALUMAB
     Dosage: TOTAL 1500 MG USED
     Route: 042

REACTIONS (4)
  - Abdominal distension [Unknown]
  - Blood pressure increased [Unknown]
  - Hypophagia [Unknown]
  - Tumour hyperprogression [Unknown]
